FAERS Safety Report 9879528 (Version 3)
Quarter: 2014Q2

REPORT INFORMATION
  Report Type: Spontaneous
  Country: FR (occurrence: FR)
  Receive Date: 20140206
  Receipt Date: 20140618
  Transmission Date: 20141212
  Serious: Yes (Disabling, Other)
  Sender: FDA-Public Use
  Company Number: FR-ELI_LILLY_AND_COMPANY-FR201401010527

PATIENT
  Age: 41 Year
  Sex: Male
  Weight: 102 kg

DRUGS (8)
  1. ALIMTA [Suspect]
     Indication: BRONCHIAL CARCINOMA
     Dosage: 500 MG/M2, EVERY 3 WEEKS, 1000MG PER INJECTION
     Route: 042
     Dates: start: 20121030, end: 20140113
  2. CARBOPLATINE [Concomitant]
     Indication: BRONCHIAL CARCINOMA
     Dosage: UNK
     Route: 042
     Dates: start: 20121030, end: 20121231
  3. DEXAMETHASONE [Concomitant]
  4. SPECIAFOLDINE [Concomitant]
     Dosage: 0.4 MG, UNK
  5. VITAMIN B12 (CYANOCOBALAMIN AND ANALOGUES) [Concomitant]
  6. BINOCRIT [Concomitant]
     Indication: ANAEMIA
     Dosage: 30000 IU, UNK
     Route: 058
     Dates: start: 20121120, end: 20130120
  7. ZARZIO [Concomitant]
     Dosage: 30 IU, UNK
     Route: 058
     Dates: start: 20121121, end: 20121130
  8. LASILIX                            /00032601/ [Concomitant]
     Indication: OEDEMA
     Dosage: 40 MG, UNK
     Route: 048
     Dates: start: 20140210, end: 20140215

REACTIONS (8)
  - Generalised oedema [Not Recovered/Not Resolved]
  - Weight increased [Not Recovered/Not Resolved]
  - Lacrimation increased [Not Recovered/Not Resolved]
  - Thrombocytopenia [Recovered/Resolved]
  - Neutropenia [Recovered/Resolved]
  - Increased appetite [Unknown]
  - Hypoalbuminaemia [Unknown]
  - Off label use [Unknown]
